FAERS Safety Report 14967670 (Version 1)
Quarter: 2018Q2

REPORT INFORMATION
  Report Type: Report from Study
  Country: BR (occurrence: BR)
  Receive Date: 20180604
  Receipt Date: 20180604
  Transmission Date: 20180711
  Serious: Yes (Hospitalization)
  Sender: FDA-Public Use
  Company Number: BR-ROCHE-1986745

PATIENT
  Age: 53 Year
  Sex: Female
  Weight: 54.7 kg

DRUGS (49)
  1. BROMOPRIDE [Concomitant]
     Active Substance: BROMOPRIDE
     Route: 065
     Dates: start: 20170830, end: 20170830
  2. ENOXAPARIN [Concomitant]
     Active Substance: ENOXAPARIN
     Route: 065
     Dates: start: 20170829, end: 20170831
  3. BEPANTOL [Concomitant]
     Route: 065
     Dates: start: 20180223
  4. FLUOROURACIL. [Suspect]
     Active Substance: FLUOROURACIL
     Indication: COLORECTAL CANCER METASTATIC
     Dosage: 23/AUG/2017- LAST DOSE ADMINISTERED PRIOR TO EVENT (2400 MG)
     Route: 042
     Dates: start: 20170717
  5. CAPECITABINE. [Suspect]
     Active Substance: CAPECITABINE
     Indication: COLORECTAL CANCER METASTATIC
     Dosage: DOSE OF LAST STUDY DRUG ADMINISTERED (1156 MG) ON 17/APR/2018 SHE RECEIVED MOST RECENT DOSE
     Route: 048
     Dates: start: 20171201
  6. CAPECITABINE. [Suspect]
     Active Substance: CAPECITABINE
     Route: 048
     Dates: start: 20180502, end: 20180515
  7. RANITIDINE. [Concomitant]
     Active Substance: RANITIDINE
     Route: 065
     Dates: start: 20170904, end: 20170904
  8. BROMOPRIDE [Concomitant]
     Active Substance: BROMOPRIDE
     Route: 065
     Dates: start: 20170831, end: 20170831
  9. LOPERAMIDE [Concomitant]
     Active Substance: LOPERAMIDE
     Route: 065
     Dates: start: 20171218, end: 20171220
  10. DEXAMETHASONE. [Concomitant]
     Active Substance: DEXAMETHASONE
     Route: 065
     Dates: start: 20170821, end: 20170821
  11. DEXAMETHASONE. [Concomitant]
     Active Substance: DEXAMETHASONE
     Route: 065
     Dates: start: 20170904, end: 20170904
  12. METRONIDAZOLE. [Concomitant]
     Active Substance: METRONIDAZOLE
     Route: 065
     Dates: start: 20170901, end: 20170904
  13. CITONEURIN [Concomitant]
     Active Substance: CYANOCOBALAMIN\PYRIDOXINE HYDROCHLORIDE\THIAMINE
     Indication: PERIPHERAL SENSORY NEUROPATHY
     Route: 065
     Dates: start: 20180117
  14. LOPERAMIDE [Concomitant]
     Active Substance: LOPERAMIDE
     Indication: DIARRHOEA
     Route: 065
     Dates: start: 20171002, end: 20171113
  15. BEVACIZUMAB. [Suspect]
     Active Substance: BEVACIZUMAB
     Indication: COLORECTAL CANCER METASTATIC
     Dosage: 15-30 MINUTE ON DAY 1?MOST RECENT DOSE PRIOR TO EVENT  ON  18/APR/2018  (273.5 MG) AT 11.45
     Route: 042
     Dates: start: 20170717
  16. EMEND [Concomitant]
     Active Substance: APREPITANT
     Route: 065
     Dates: start: 20170807, end: 20170807
  17. FLORATIL [Concomitant]
     Indication: DIARRHOEA
     Route: 065
     Dates: start: 20170727, end: 20170730
  18. FLORATIL [Concomitant]
     Dosage: 2 TABLETS
     Route: 065
     Dates: start: 20170727, end: 20170731
  19. IBUPROFEN. [Concomitant]
     Active Substance: IBUPROFEN
     Indication: PHARYNGITIS
     Route: 065
     Dates: start: 20170811, end: 20170814
  20. IMOSEC [Concomitant]
     Active Substance: LOPERAMIDE
     Route: 065
     Dates: start: 20170731, end: 20170802
  21. IMOSEC [Concomitant]
     Active Substance: LOPERAMIDE
     Route: 065
     Dates: start: 20170803, end: 20170820
  22. IMOSEC [Concomitant]
     Active Substance: LOPERAMIDE
     Dosage: FOR  DIARRHEA
     Route: 065
     Dates: start: 20171003, end: 20171113
  23. LUFTAL [Concomitant]
     Active Substance: DIMETHICONE
     Route: 065
     Dates: start: 20170818
  24. OMEPRAZOLE. [Concomitant]
     Active Substance: OMEPRAZOLE
     Route: 065
     Dates: start: 20170731
  25. BUSCOPAN COMPOSITUM [Concomitant]
     Indication: DIARRHOEA
     Route: 065
     Dates: start: 20170727, end: 20170802
  26. GABAPENTINE [Concomitant]
     Active Substance: GABAPENTIN
     Route: 065
     Dates: start: 20180117
  27. OXALIPLATIN. [Suspect]
     Active Substance: OXALIPLATIN
     Indication: COLORECTAL CANCER METASTATIC
     Dosage: 21/AUG/2017- LAST DOSE ADMINISTERED PRIOR TO EVENT (400 MG)
     Route: 042
     Dates: start: 20170717
  28. CAPECITABINE. [Suspect]
     Active Substance: CAPECITABINE
     Route: 048
     Dates: start: 20180417, end: 20180501
  29. EMEND [Concomitant]
     Active Substance: APREPITANT
     Route: 065
     Dates: start: 20170821, end: 20170821
  30. ZOFRAN [Concomitant]
     Active Substance: ONDANSETRON HYDROCHLORIDE
     Route: 065
     Dates: start: 20170821, end: 20170821
  31. BUSCOPAN COMPOSITUM [Concomitant]
     Route: 065
     Dates: start: 20170727
  32. CIPROFLOXACIN. [Concomitant]
     Active Substance: CIPROFLOXACIN
     Route: 065
     Dates: start: 20170829, end: 20170830
  33. RANITIDINE. [Concomitant]
     Active Substance: RANITIDINE
     Route: 065
     Dates: start: 20170821, end: 20170821
  34. DEXAMETHASONE. [Concomitant]
     Active Substance: DEXAMETHASONE
     Route: 065
     Dates: start: 20170807, end: 20170807
  35. DIPYRONE [Concomitant]
     Active Substance: DIPYRONE
     Route: 065
     Dates: start: 20170712, end: 20170716
  36. EMEND [Concomitant]
     Active Substance: APREPITANT
     Route: 065
     Dates: start: 20170904, end: 20170904
  37. IMOSEC [Concomitant]
     Active Substance: LOPERAMIDE
     Indication: DIARRHOEA
     Route: 065
     Dates: start: 20170821, end: 20171220
  38. CIPROFLOXACIN. [Concomitant]
     Active Substance: CIPROFLOXACIN
     Indication: DIARRHOEA
     Route: 065
     Dates: start: 20170828, end: 20170828
  39. FOLINIC ACID [Suspect]
     Active Substance: LEUCOVORIN
     Indication: COLORECTAL CANCER METASTATIC
     Dosage: 21/AUG/2017- LAST DOSE ADMINISTERED PRIOR TO EVENT (400 MG)
     Route: 042
     Dates: start: 20170717
  40. DIPYRONE [Concomitant]
     Active Substance: DIPYRONE
     Route: 065
     Dates: start: 20170811, end: 20170814
  41. CIPROFLOXACIN. [Concomitant]
     Active Substance: CIPROFLOXACIN
     Route: 065
     Dates: start: 20170901, end: 20170904
  42. CODEINE [Concomitant]
     Active Substance: CODEINE
     Route: 065
     Dates: start: 20180425
  43. SCOPOLAMINE [Concomitant]
     Active Substance: SCOPOLAMINE
     Route: 065
     Dates: start: 20180425
  44. RANITIDINE. [Concomitant]
     Active Substance: RANITIDINE
     Route: 065
     Dates: start: 20170807, end: 20170807
  45. ZOFRAN [Concomitant]
     Active Substance: ONDANSETRON HYDROCHLORIDE
     Route: 065
     Dates: start: 20170807, end: 20170807
  46. ZOFRAN [Concomitant]
     Active Substance: ONDANSETRON HYDROCHLORIDE
     Route: 065
     Dates: start: 20170904, end: 20170904
  47. CIPROFLOXACIN. [Concomitant]
     Active Substance: CIPROFLOXACIN
     Route: 065
     Dates: start: 20170831, end: 20170831
  48. METRONIDAZOLE. [Concomitant]
     Active Substance: METRONIDAZOLE
     Route: 065
     Dates: start: 20170828, end: 20170831
  49. BUSCOPAN COMPOSITUM [Concomitant]
     Indication: DIARRHOEA
     Route: 065
     Dates: start: 20170727, end: 20170802

REACTIONS (2)
  - Colitis [Recovered/Resolved]
  - Abdominal pain [Recovered/Resolved]

NARRATIVE: CASE EVENT DATE: 20170826
